FAERS Safety Report 17932343 (Version 2)
Quarter: 2020Q2

REPORT INFORMATION
  Report Type: Spontaneous
  Country: US (occurrence: US)
  Receive Date: 20200624
  Receipt Date: 20200624
  Transmission Date: 20200714
  Serious: No
  Sender: FDA-Public Use
  Company Number: US-BIOGEN-2020BI00889577

PATIENT
  Sex: Female

DRUGS (1)
  1. PLEGRIDY [Suspect]
     Active Substance: PEGINTERFERON BETA-1A
     Indication: MULTIPLE SCLEROSIS
     Route: 058
     Dates: start: 20190121, end: 20200106

REACTIONS (6)
  - Erythema [Unknown]
  - Pruritus [Unknown]
  - Influenza like illness [Unknown]
  - Anxiety [Unknown]
  - Skin exfoliation [Unknown]
  - Depression [Unknown]
